FAERS Safety Report 14363338 (Version 1)
Quarter: 2018Q1

REPORT INFORMATION
  Report Type: Spontaneous
  Country: CN (occurrence: CN)
  Receive Date: 20180108
  Receipt Date: 20180108
  Transmission Date: 20180509
  Serious: Yes (Hospitalization)
  Sender: FDA-Public Use
  Company Number: CN-VIIV HEALTHCARE LIMITED-CN2018GSK001077

PATIENT
  Age: 31 Year
  Sex: Female
  Weight: 58 kg

DRUGS (2)
  1. HEPTODIN [Suspect]
     Active Substance: LAMIVUDINE
     Indication: EXPOSURE TO COMMUNICABLE DISEASE
     Dosage: 100 MG, QD
     Route: 048
     Dates: start: 20171020, end: 20171023
  2. VIREAD [Suspect]
     Active Substance: TENOFOVIR DISOPROXIL FUMARATE
     Indication: EXPOSURE TO COMMUNICABLE DISEASE
     Dosage: 300 MG, QD
     Route: 048
     Dates: start: 20171020, end: 20171023

REACTIONS (4)
  - Face oedema [Recovering/Resolving]
  - Product use in unapproved indication [Unknown]
  - Rash erythematous [Recovering/Resolving]
  - Drug eruption [Recovering/Resolving]

NARRATIVE: CASE EVENT DATE: 2017
